FAERS Safety Report 8833100 (Version 2)
Quarter: 2012Q4

REPORT INFORMATION
  Report Type: 
  Country: US (occurrence: US)
  Receive Date: 20121010
  Receipt Date: 20121106
  Transmission Date: 20130627
  Serious: Yes (Death, Other)
  Sender: FDA-Public Use
  Company Number: US-INCYTE CORPORATION-2012IN001983

PATIENT
  Age: 69 None
  Sex: Male
  Weight: 107.94 kg

DRUGS (10)
  1. JAKAFI [Suspect]
     Indication: MYELOFIBROSIS
     Dosage: 5 mg, bid
     Route: 048
     Dates: start: 20120217, end: 201204
  2. JAKAFI [Suspect]
     Dosage: 10 mg, bid
     Route: 048
     Dates: start: 201204, end: 201206
  3. JAKAFI [Suspect]
     Dosage: 20 mg, bid
     Route: 048
     Dates: start: 201206, end: 20120803
  4. AMLODIPINE [Concomitant]
  5. TESTOSTERONE [Concomitant]
  6. ATENOLOL [Concomitant]
  7. LEVOXYL [Concomitant]
  8. LIPITOR [Concomitant]
  9. OXYBUTYNIN [Concomitant]
  10. TRICOR [Concomitant]

REACTIONS (5)
  - Myocardial infarction [Fatal]
  - Cardiac failure congestive [None]
  - Anaemia [Unknown]
  - Platelet count decreased [Unknown]
  - Drug ineffective [Unknown]
